FAERS Safety Report 13993368 (Version 6)
Quarter: 2018Q4

REPORT INFORMATION
  Report Type: Spontaneous
  Country: RU (occurrence: RU)
  Receive Date: 20170920
  Receipt Date: 20181218
  Transmission Date: 20190204
  Serious: Yes (Hospitalization, Other)
  Sender: FDA-Public Use
  Company Number: RU-ASTRAZENECA-2017SE95079

PATIENT
  Age: 72 Year
  Sex: Female
  Weight: 56 kg

DRUGS (9)
  1. BRILINTA [Suspect]
     Active Substance: TICAGRELOR
     Indication: MYOCARDIAL INFARCTION
     Route: 048
     Dates: start: 201707, end: 201811
  2. BISOPROLOL [Concomitant]
     Active Substance: BISOPROLOL
     Dates: start: 201804
  3. TROMBO ASS [Concomitant]
     Active Substance: ASPIRIN
     Dates: end: 20180101
  4. ROSUVASTATIN. [Concomitant]
     Active Substance: ROSUVASTATIN
     Dates: start: 201804
  5. CARDIOMAGNYL [Concomitant]
     Active Substance: ASPIRIN\MAGNESIUM HYDROXIDE
     Dates: start: 201804
  6. INDAPAMIDE. [Concomitant]
     Active Substance: INDAPAMIDE
     Dates: start: 201804
  7. BRILINTA [Suspect]
     Active Substance: TICAGRELOR
     Indication: STENT PLACEMENT
     Route: 048
     Dates: start: 201707, end: 201811
  8. PERINDOPRIL [Concomitant]
     Active Substance: PERINDOPRIL
     Dates: start: 201804
  9. OMEPRAZOL [Concomitant]
     Active Substance: OMEPRAZOLE
     Dates: start: 201804

REACTIONS (18)
  - Inguinal hernia [Not Recovered/Not Resolved]
  - Product use issue [Not Recovered/Not Resolved]
  - Blood cholesterol increased [Recovered/Resolved]
  - Blood pressure decreased [Not Recovered/Not Resolved]
  - Traumatic haemorrhage [Recovered/Resolved]
  - Neoplasm [Recovered/Resolved]
  - Increased tendency to bruise [Not Recovered/Not Resolved]
  - Intentional product misuse [Not Recovered/Not Resolved]
  - Off label use [Not Recovered/Not Resolved]
  - Chest pain [Recovered/Resolved]
  - Alanine aminotransferase increased [Recovered/Resolved]
  - Blood pressure increased [Not Recovered/Not Resolved]
  - Dyspnoea exertional [Recovered/Resolved]
  - Epistaxis [Recovered/Resolved]
  - Vascular stent thrombosis [Recovered/Resolved]
  - Aspartate aminotransferase increased [Recovered/Resolved]
  - Peripheral swelling [Not Recovered/Not Resolved]
  - Hypersensitivity [Not Recovered/Not Resolved]

NARRATIVE: CASE EVENT DATE: 201707
